FAERS Safety Report 10553389 (Version 1)
Quarter: 2014Q4

REPORT INFORMATION
  Report Type: Report from Study
  Country: US (occurrence: US)
  Receive Date: 20141030
  Receipt Date: 20141030
  Transmission Date: 20150529
  Serious: Yes (Hospitalization, Other)
  Sender: FDA-Public Use
  Company Number: US-BRISTOL-MYERS SQUIBB COMPANY-21517008

PATIENT
  Age: 81 Year
  Sex: Male
  Weight: 79.36 kg

DRUGS (4)
  1. NORVIR [Concomitant]
     Active Substance: RITONAVIR
  2. METFORMIN [Concomitant]
     Active Substance: METFORMIN HYDROCHLORIDE
  3. COUMADIN [Concomitant]
     Active Substance: WARFARIN SODIUM
  4. ERBITUX [Suspect]
     Active Substance: CETUXIMAB
     Indication: THROAT CANCER
     Dates: start: 20141006

REACTIONS (6)
  - Musculoskeletal pain [Unknown]
  - Somnolence [Unknown]
  - Malignant neoplasm progression [Unknown]
  - Drug level increased [Recovered/Resolved]
  - Hypotension [Recovered/Resolved]
  - Hearing impaired [Unknown]
